FAERS Safety Report 13937405 (Version 2)
Quarter: 2017Q4

REPORT INFORMATION
  Report Type: Spontaneous
  Country: US (occurrence: US)
  Receive Date: 20170905
  Receipt Date: 20171026
  Transmission Date: 20180320
  Serious: No
  Sender: FDA-Public Use
  Company Number: US-ASTRAZENECA-2017SE88035

PATIENT
  Age: 950 Month
  Sex: Female
  Weight: 53.5 kg

DRUGS (4)
  1. HYZAAR [Concomitant]
     Active Substance: HYDROCHLOROTHIAZIDE\LOSARTAN POTASSIUM
     Indication: BLOOD PRESSURE ABNORMAL
     Route: 048
  2. PROVENTIL HFA [Concomitant]
     Active Substance: ALBUTEROL SULFATE
     Indication: ASTHMA
     Dosage: AS REQUIRED
     Route: 055
  3. PULMICORT FLEXHALER [Suspect]
     Active Substance: BUDESONIDE
     Indication: ASTHMA
     Dosage: 180 MG, ONE PUFF, TWICE A DAY
     Route: 055
  4. PULMICORT FLEXHALER [Suspect]
     Active Substance: BUDESONIDE
     Indication: ASTHMA
     Dosage: 180 MG, TWO PUFFS, TWICE A DAY
     Route: 055

REACTIONS (11)
  - Wheezing [Unknown]
  - Emotional distress [Unknown]
  - Intentional product misuse [Unknown]
  - Intentional product use issue [Unknown]
  - Wrong technique in product usage process [Unknown]
  - Drug ineffective [Unknown]
  - Product taste abnormal [Unknown]
  - Hypotension [Unknown]
  - Body height decreased [Unknown]
  - Insomnia [Unknown]
  - Device malfunction [Unknown]

NARRATIVE: CASE EVENT DATE: 201708
